FAERS Safety Report 14707478 (Version 4)
Quarter: 2019Q1

REPORT INFORMATION
  Report Type: Spontaneous
  Country: BR (occurrence: BR)
  Receive Date: 20180403
  Receipt Date: 20190204
  Transmission Date: 20190417
  Serious: Yes (Other)
  Sender: FDA-Public Use
  Company Number: BR-ABBVIE-18P-020-2308854-00

PATIENT
  Age: 37 Year
  Sex: Male
  Weight: 76 kg

DRUGS (7)
  1. VITAMIN A AND D [Concomitant]
     Active Substance: LANOLIN\PETROLATUM
     Indication: VITAMIN SUPPLEMENTATION
     Dosage: DAILY DOSE : 5 DROPS, BEFORE LUNCH,
     Route: 048
     Dates: start: 2017
  2. DEPAKENE [Suspect]
     Active Substance: VALPROIC ACID
     Indication: EPILEPSY
     Dosage: DAILY DOSE: UNKNOWN, START DATE: DOES NOT REMEMBER, 500 MG
     Route: 048
  3. DEPAKENE [Suspect]
     Active Substance: VALPROIC ACID
     Dosage: 500 MG
     Route: 048
  4. RIVOTRIL [Concomitant]
     Active Substance: CLONAZEPAM
     Indication: SEIZURE
     Dosage: DAILY DOSE: 1 TABLET, AT NIGHT, START DATE: DOES NOT KNOW EXACTLY, A LONG TIME AGO
     Route: 048
     Dates: start: 2003
  5. RIVOTRIL [Concomitant]
     Active Substance: CLONAZEPAM
     Indication: EPILEPSY
  6. LEVOID [Concomitant]
     Active Substance: LEVOTHYROXINE
     Indication: HYPOTHYROIDISM
     Dosage: DAILY DOSE 1 TABLET, START DATE: LATE 2018
     Dates: start: 2018
  7. DEPAKENE [Suspect]
     Active Substance: VALPROIC ACID
     Indication: SEIZURE
     Dosage: 500 MG
     Route: 048
     Dates: start: 2003

REACTIONS (8)
  - Monoplegia [Recovered/Resolved]
  - Product physical issue [Unknown]
  - Seizure [Recovered/Resolved]
  - Speech disorder [Recovered/Resolved]
  - Facial spasm [Recovered/Resolved]
  - Product physical issue [Recovered/Resolved]
  - Blood test abnormal [Unknown]
  - Seizure [Recovered/Resolved]

NARRATIVE: CASE EVENT DATE: 201712
